FAERS Safety Report 6119500-1 (Version None)
Quarter: 2009Q1

REPORT INFORMATION
  Report Type: 
  Country: None (occurrence: None)
  Receive Date: 20090316
  Receipt Date: 20090306
  Transmission Date: 20090719
  Serious: Yes (Death, Hospitalization)
  Sender: FDA-Public Use
  Company Number: A0773181A

PATIENT
  Age: 62 Year
  Sex: Male
  Weight: 136.4 kg

DRUGS (7)
  1. AVANDIA [Suspect]
     Indication: DIABETES MELLITUS
     Dosage: 8MG TWICE PER DAY
     Route: 048
     Dates: start: 20040907, end: 20080101
  2. METFORMIN HCL [Concomitant]
  3. INSULIN [Concomitant]
  4. GLYBURIDE [Concomitant]
  5. CLOPIDOGREL [Concomitant]
  6. IRON [Concomitant]
  7. ASPIRIN [Concomitant]

REACTIONS (1)
  - MYOCARDIAL INFARCTION [None]
